FAERS Safety Report 5471386-4 (Version None)
Quarter: 2007Q3

REPORT INFORMATION
  Report Type: 
  Country: None (occurrence: None)
  Receive Date: 20070928
  Receipt Date: 20060919
  Transmission Date: 20080115
  Serious: No
  Sender: FDA-Public Use
  Company Number: US-BRISTOL-MYERS SQUIBB COMPANY-13513627

PATIENT
  Age: 40 Year
  Sex: Male
  Weight: 195 kg

DRUGS (6)
  1. DEFINITY [Suspect]
     Indication: ECHOCARDIOGRAM
     Dosage: 1 CC OF DEFINITY IN 9 CC OF NORMAL SALINE.
     Route: 042
     Dates: start: 20060919, end: 20060919
  2. SODIUM CHLORIDE [Concomitant]
     Indication: ECHOCARDIOGRAM
     Route: 042
     Dates: start: 20060919, end: 20060919
  3. COUMADIN [Concomitant]
  4. METHADONE HCL [Concomitant]
  5. METOPROLOL SUCCINATE [Concomitant]
  6. WELLBUTRIN [Concomitant]

REACTIONS (1)
  - BACK PAIN [None]
